FAERS Safety Report 8042877-7 (Version None)
Quarter: 2012Q1

REPORT INFORMATION
  Report Type: 
  Country: None (occurrence: None)
  Receive Date: 20120112
  Receipt Date: 20120109
  Transmission Date: 20120608
  Serious: Yes (Other)
  Sender: FDA-Public Use
  Company Number: US-JNJFOC-20120102991

PATIENT
  Sex: Male
  Weight: 99.79 kg

DRUGS (2)
  1. STELARA [Suspect]
     Indication: PSORIASIS
     Route: 058
     Dates: start: 20090101, end: 20110101
  2. STELARA [Suspect]
     Route: 058
     Dates: start: 20110101

REACTIONS (6)
  - THERAPEUTIC RESPONSE DECREASED [None]
  - HYPERTENSION [None]
  - LETHARGY [None]
  - BLOOD CHOLESTEROL INCREASED [None]
  - PSORIASIS [None]
  - DRUG DOSE OMISSION [None]
